FAERS Safety Report 5472240-4 (Version None)
Quarter: 2007Q3

REPORT INFORMATION
  Report Type: 
  Country: None (occurrence: None)
  Receive Date: 20070926
  Receipt Date: 20070914
  Transmission Date: 20080115
  Serious: Yes (Hospitalization)
  Sender: FDA-Public Use
  Company Number: 2007316028

PATIENT
  Age: 3 Year
  Sex: Female
  Weight: 12.7 kg

DRUGS (1)
  1. LISTERINE AGENT COOL BLUE BUBBLE BLAST (NO ACTIVE INGREDIENT) [Suspect]
     Indication: DENTAL PLAQUE
     Dosage: 10 ML TWICE PER DAY (10 ML, 2 IN 1 D), ORAL
     Route: 048
     Dates: start: 20070101, end: 20070412

REACTIONS (4)
  - APHTHOUS STOMATITIS [None]
  - FURUNCLE [None]
  - HERPES SIMPLEX [None]
  - STAPHYLOCOCCAL INFECTION [None]
